FAERS Safety Report 22083681 (Version 1)
Quarter: 2023Q1

REPORT INFORMATION
  Report Type: Spontaneous
  Country: CA (occurrence: CA)
  Receive Date: 20230310
  Receipt Date: 20230310
  Transmission Date: 20230418
  Serious: Yes (Life-Threatening, Hospitalization)
  Sender: FDA-Public Use
  Company Number: CA-PFIZER INC-202300102120

PATIENT
  Age: 18 Year
  Sex: Male
  Weight: 64 kg

DRUGS (9)
  1. CYTARABINE [Suspect]
     Active Substance: CYTARABINE
     Indication: Acute myeloid leukaemia
     Dosage: 1800 MG, 2X/DAY
     Route: 042
  2. MYLOTARG [Suspect]
     Active Substance: GEMTUZUMAB OZOGAMICIN
     Indication: Acute myeloid leukaemia
     Dosage: 4.5 MG, SINGLE
  3. DIMENHYDRINATE [Concomitant]
     Active Substance: DIMENHYDRINATE
     Dosage: UNK
  4. GRANISETRON [Concomitant]
     Active Substance: GRANISETRON
     Dosage: UNK
  5. MEROPENEM [Concomitant]
     Active Substance: MEROPENEM
     Dosage: UNK
  6. NABILONE [Concomitant]
     Active Substance: NABILONE
     Dosage: UNK
  7. OLANZAPINE [Concomitant]
     Active Substance: OLANZAPINE
     Dosage: UNK
  8. TRIMETHOPRIM [Concomitant]
     Active Substance: TRIMETHOPRIM
     Dosage: UNK
  9. VANCOMYCIN [Concomitant]
     Active Substance: VANCOMYCIN
     Dosage: UNK

REACTIONS (2)
  - Nausea [Recovered/Resolved]
  - Pancytopenia [Recovered/Resolved]
